FAERS Safety Report 6951265-3 (Version None)
Quarter: 2010Q3

REPORT INFORMATION
  Report Type: 
  Country: None (occurrence: None)
  Receive Date: 20100828
  Receipt Date: 20100322
  Transmission Date: 20110219
  Serious: No
  Sender: FDA-Public Use
  Company Number: US-ABBOTT-10P-163-0633547-00

PATIENT
  Sex: Male

DRUGS (4)
  1. NIASPAN [Suspect]
     Indication: PRODUCT USED FOR UNKNOWN INDICATION
     Dosage: 1500MG Q HS
     Route: 048
     Dates: start: 20100319
  2. NIASPAN [Suspect]
     Dosage: 1000MG Q HS
     Dates: start: 20100101, end: 20100319
  3. NIASPAN [Suspect]
     Dosage: RETURNED TO 1000MG Q HS
  4. ASPIRIN [Concomitant]
     Indication: PRODUCT USED FOR UNKNOWN INDICATION
     Dosage: Q HS
     Route: 048

REACTIONS (7)
  - ASTHENIA [None]
  - BACK PAIN [None]
  - DIARRHOEA [None]
  - FATIGUE [None]
  - FLUSHING [None]
  - NECK PAIN [None]
  - VOMITING [None]
